FAERS Safety Report 15561832 (Version 1)
Quarter: 2018Q4

REPORT INFORMATION
  Report Type: Spontaneous
  Country: US (occurrence: US)
  Receive Date: 20181025
  Receipt Date: 20181025
  Transmission Date: 20190205
  Serious: No
  Sender: FDA-Public Use
  Company Number: None

PATIENT
  Age: 9 Year
  Sex: Female
  Weight: 54 kg

DRUGS (1)
  1. SINGULAIR [Suspect]
     Active Substance: MONTELUKAST SODIUM
     Indication: ASTHMA
     Dosage: ?          OTHER DOSE:1 CHEWABLE;OTHER ROUTE:TAKEN BY MOUTH?

REACTIONS (28)
  - Abdominal discomfort [None]
  - Pneumonia [None]
  - Proteinuria [None]
  - Obsessive-compulsive disorder [None]
  - Hypersensitivity [None]
  - Bronchitis [None]
  - Sleep talking [None]
  - Restlessness [None]
  - Tic [None]
  - Secondary tic [None]
  - Seizure like phenomena [None]
  - Screaming [None]
  - Aggression [None]
  - Abdominal pain upper [None]
  - Panic attack [None]
  - Speech disorder [None]
  - Nightmare [None]
  - Muscle twitching [None]
  - Anger [None]
  - Weight increased [None]
  - Reaction to food additive [None]
  - Social avoidant behaviour [None]
  - Agitation [None]
  - Somnambulism [None]
  - Blood pressure abnormal [None]
  - Insomnia [None]
  - Mood swings [None]
  - Anxiety [None]
